FAERS Safety Report 23109902 (Version 1)
Quarter: 2023Q4

REPORT INFORMATION
  Report Type: Report from Study
  Country: CA (occurrence: CA)
  Receive Date: 20231026
  Receipt Date: 20231026
  Transmission Date: 20240109
  Serious: Yes (Other)
  Sender: FDA-Public Use
  Company Number: CA-Eisai-EC-2023-151196

PATIENT
  Age: 62 Year
  Sex: Male

DRUGS (1)
  1. LENVIMA [Suspect]
     Active Substance: LENVATINIB
     Indication: Hepatocellular carcinoma
     Route: 048
     Dates: start: 20231012

REACTIONS (5)
  - Pancreatitis [Unknown]
  - Blood pressure fluctuation [Not Recovered/Not Resolved]
  - Hypothyroidism [Unknown]
  - Fistula [Unknown]
  - Dehydration [Unknown]

NARRATIVE: CASE EVENT DATE: 20231001
